FAERS Safety Report 7982952-6 (Version None)
Quarter: 2011Q4

REPORT INFORMATION
  Report Type: 
  Country: None (occurrence: None)
  Receive Date: 20111215
  Receipt Date: 20111212
  Transmission Date: 20120403
  Serious: Yes (Other)
  Sender: FDA-Public Use
  Company Number: ES-MERCK-1112ESP00014

PATIENT
  Age: 80 Year
  Sex: Male

DRUGS (2)
  1. TRAZODONE HYDROCHLORIDE [Concomitant]
     Route: 048
     Dates: end: 20110101
  2. SINEMET [Suspect]
     Route: 048
     Dates: end: 20110101

REACTIONS (3)
  - MEDICATION ERROR [None]
  - HALLUCINATION [None]
  - AGITATION [None]
